FAERS Safety Report 4467114-1 (Version None)
Quarter: 2004Q4

REPORT INFORMATION
  Report Type: 
  Country: None (occurrence: None)
  Receive Date: 20041006
  Receipt Date: 20040924
  Transmission Date: 20050328
  Serious: Yes (Hospitalization)
  Sender: FDA-Public Use
  Company Number: DE-BRISTOL-MYERS SQUIBB COMPANY-12711305

PATIENT
  Age: 66 Year
  Sex: Female
  Weight: 63 kg

DRUGS (8)
  1. KARVEZIDE TABS 150MG/12.5MG [Interacting]
     Indication: HYPERTENSION
     Dosage: DOSAGE FORM=150/12.5 MG DAILY; DURATION=YEARS
     Route: 048
  2. FALITHROM [Interacting]
     Indication: THROMBOSIS PROPHYLAXIS
     Route: 048
     Dates: start: 20010901, end: 20040413
  3. INNOHEP [Suspect]
     Indication: THROMBOSIS PROPHYLAXIS
     Dosage: 2 X 0.7 ML/D FROM 14-APR-2004 TO 15-APR-2004; 1 X 0.7 ML/D FROM 16-APR-2004 TO 18-APR-2004
     Route: 058
     Dates: start: 20040414, end: 20040418
  4. ATORVASTATIN CALCIUM [Interacting]
     Indication: HYPERLIPIDAEMIA
     Dosage: DURATION=YEARS
     Route: 048
  5. BELOC-ZOK [Concomitant]
     Indication: HYPERTENSION
     Dosage: SINCE YEARS
     Route: 048
  6. DIGITOXIN [Concomitant]
     Indication: CARDIAC FAILURE
     Dosage: SINCE YEARS
     Route: 048
  7. EZETROL [Concomitant]
     Indication: HYPERLIPIDAEMIA
     Route: 048
     Dates: start: 20030101
  8. MOXONIDINE [Concomitant]
     Dosage: 2 X 0.3 MG SINCE YEARS
     Route: 048

REACTIONS (2)
  - DRUG INTERACTION [None]
  - HAEMORRHAGE [None]
